FAERS Safety Report 14124414 (Version 5)
Quarter: 2019Q3

REPORT INFORMATION
  Report Type: Spontaneous
  Country: US (occurrence: US)
  Receive Date: 20171025
  Receipt Date: 20190712
  Transmission Date: 20191004
  Serious: No
  Sender: FDA-Public Use
  Company Number: US-PFIZER INC-2017166762

PATIENT
  Age: 62 Year
  Sex: Female
  Weight: 63 kg

DRUGS (1)
  1. XELJANZ XR [Suspect]
     Active Substance: TOFACITINIB CITRATE
     Indication: RHEUMATOID ARTHRITIS
     Dosage: 11 MG, 1X/DAY
     Route: 048
     Dates: start: 201704

REACTIONS (3)
  - Weight increased [Recovered/Resolved]
  - Head injury [Unknown]
  - Fall [Unknown]

NARRATIVE: CASE EVENT DATE: 201704
